FAERS Safety Report 4438439-0 (Version None)
Quarter: 2004Q3

REPORT INFORMATION
  Report Type: 
  Country: None (occurrence: None)
  Receive Date: 20040831
  Receipt Date: 20040823
  Transmission Date: 20050211
  Serious: Yes (Hospitalization, Congenital Anomaly)
  Sender: FDA-Public Use
  Company Number: DK-BRISTOL-MYERS SQUIBB COMPANY-12678876

PATIENT
  Sex: Female

DRUGS (2)
  1. BUSPAR [Suspect]
     Dosage: TAKEN BY MOTHER FOR ^SEVERAL YEARS^
     Route: 064
  2. CIPRAMIL [Concomitant]
     Dosage: TAKEN BY MOTHER FOR ^SEVERAL YEARS^
     Route: 064

REACTIONS (1)
  - CONGENITAL VENTRICULAR SEPTAL DEFECT [None]
